FAERS Safety Report 8028964-8 (Version None)
Quarter: 2012Q1

REPORT INFORMATION
  Report Type: 
  Country: None (occurrence: None)
  Receive Date: 20120106
  Receipt Date: 20111222
  Transmission Date: 20120608
  Serious: Yes (Death, Hospitalization, Disabling, Other)
  Sender: FDA-Public Use
  Company Number: FR-CELGENEUS-056-50794-10011548

PATIENT
  Sex: Male
  Weight: 60 kg

DRUGS (2)
  1. VIDAZA [Suspect]
     Dosage: 75 MILLIGRAM/SQ. METER
     Route: 050
     Dates: start: 20090202, end: 20091122
  2. VIDAZA [Suspect]
     Dosage: 65MG, 2 IN 1 HOUR
     Route: 058

REACTIONS (2)
  - INTERSTITIAL LUNG DISEASE [None]
  - PULMONARY ARTERIAL HYPERTENSION [None]
